FAERS Safety Report 5930355-8 (Version None)
Quarter: 2008Q4

REPORT INFORMATION
  Report Type: 
  Country: None (occurrence: None)
  Receive Date: 20081023
  Receipt Date: 20081013
  Transmission Date: 20090506
  Serious: Yes (Hospitalization)
  Sender: FDA-Public Use
  Company Number: 2008SP020774

PATIENT
  Age: 24 Year
  Sex: Female

DRUGS (1)
  1. CELESTONE SOLUSPAN [Suspect]
     Indication: RHINITIS ALLERGIC
     Dosage: IM
     Route: 030
     Dates: start: 20081009

REACTIONS (2)
  - ANAPHYLACTIC SHOCK [None]
  - HEART RATE DECREASED [None]
